FAERS Safety Report 5165748-2 (Version None)
Quarter: 2006Q4

REPORT INFORMATION
  Report Type: 
  Country: None (occurrence: None)
  Receive Date: 20061128
  Receipt Date: 20061024
  Transmission Date: 20070319
  Serious: Yes (Disabling)
  Sender: FDA-Public Use
  Company Number: GXKR2006ES06504

PATIENT
  Age: 45 Year
  Sex: Male

DRUGS (4)
  1. PREDNISOLONE TAB [Suspect]
     Indication: POSTOPERATIVE CARE
     Dosage: SEE IMAGE
     Route: 048
  2. KETOROLAC (NGX) (KETOROLAC) [Suspect]
     Indication: POSTOPERATIVE CARE
     Dosage: Q6H, TOPICAL
     Route: 061
  3. POLY-PRED [Suspect]
     Indication: POSTOPERATIVE CARE
     Dosage: SEE IMAGE
  4. CYCLOPENTOLATE (CYCLOPENTOLATE) [Concomitant]

REACTIONS (2)
  - DRUG INTERACTION [None]
  - ULCERATIVE KERATITIS [None]
